FAERS Safety Report 12686034 (Version 2)
Quarter: 2016Q3

REPORT INFORMATION
  Report Type: Report from Study
  Country: US (occurrence: US)
  Receive Date: 20160825
  Receipt Date: 20160914
  Transmission Date: 20161109
  Serious: No
  Sender: FDA-Public Use
  Company Number: US-AMGEN-USASL2016108327

PATIENT
  Age: 44 Year
  Sex: Female

DRUGS (2)
  1. ENBREL [Suspect]
     Active Substance: ETANERCEPT
     Indication: PSORIATIC ARTHROPATHY
     Dosage: UNK UNK, 2 TIMES/WK
     Route: 065
     Dates: start: 19980101
  2. ENBREL [Suspect]
     Active Substance: ETANERCEPT
     Indication: PSORIASIS

REACTIONS (2)
  - Off label use [Unknown]
  - Psoriasis [Unknown]

NARRATIVE: CASE EVENT DATE: 19980101
